FAERS Safety Report 10548026 (Version 5)
Quarter: 2015Q1

REPORT INFORMATION
  Report Type: Spontaneous
  Country: JP (occurrence: JP)
  Receive Date: 20141028
  Receipt Date: 20150127
  Transmission Date: 20150720
  Serious: Yes (Death, Life-Threatening, Hospitalization, Disabling, Other)
  Sender: FDA-Public Use
  Company Number: JP-ASTELLAS-2014JP023475

PATIENT
  Age: 84 Year
  Sex: Male

DRUGS (8)
  1. PROGRAF [Suspect]
     Active Substance: TACROLIMUS\TACROLIMUS ANHYDROUS
     Indication: RHEUMATOID ARTHRITIS
     Route: 048
     Dates: start: 20140409
  2. FOLIAMIN [Concomitant]
     Active Substance: FOLIC ACID
     Indication: PROPHYLAXIS
     Route: 065
     Dates: start: 20140212
  3. MOBIC [Suspect]
     Active Substance: MELOXICAM
     Indication: RHEUMATOID ARTHRITIS
     Route: 048
     Dates: start: 20140212, end: 20140826
  4. GASTROM [Concomitant]
     Active Substance: ECABET
     Route: 048
     Dates: start: 20140827
  5. RHEUMATREX [Suspect]
     Active Substance: METHOTREXATE SODIUM
     Route: 048
     Dates: start: 20140827
  6. RHEUMATREX [Suspect]
     Active Substance: METHOTREXATE SODIUM
     Indication: RHEUMATOID ARTHRITIS
     Route: 048
     Dates: start: 20140507, end: 20140826
  7. CLINORIL [Concomitant]
     Active Substance: SULINDAC
     Indication: RHEUMATOID ARTHRITIS
     Route: 048
     Dates: start: 20140827
  8. GASTROM [Concomitant]
     Active Substance: ECABET
     Indication: PROPHYLAXIS
     Route: 048
     Dates: start: 20140212, end: 20140826

REACTIONS (10)
  - Chronic kidney disease [Not Recovered/Not Resolved]
  - Cardiac failure [Unknown]
  - Bone marrow failure [Unknown]
  - Myocardial infarction [Unknown]
  - Condition aggravated [Not Recovered/Not Resolved]
  - Myelodysplastic syndrome [Fatal]
  - Decreased appetite [Unknown]
  - Condition aggravated [Not Recovered/Not Resolved]
  - Diabetes mellitus [Not Recovered/Not Resolved]
  - Diarrhoea [Unknown]

NARRATIVE: CASE EVENT DATE: 20140827
